FAERS Safety Report 9155161 (Version 3)
Quarter: 2013Q2

REPORT INFORMATION
  Report Type: Spontaneous
  Country: US (occurrence: US)
  Receive Date: 20130311
  Receipt Date: 20130401
  Transmission Date: 20140414
  Serious: No
  Sender: FDA-Public Use
  Company Number: US-009507513-1303USA004329

PATIENT
  Sex: 0
  Weight: 67.57 kg

DRUGS (1)
  1. NEXPLANON [Suspect]
     Dosage: 1 ROD/EVERY THREE YEARS
     Route: 059
     Dates: start: 20130304

REACTIONS (3)
  - Device difficult to use [Unknown]
  - Device expulsion [Unknown]
  - No adverse event [Unknown]
